FAERS Safety Report 11872366 (Version 3)
Quarter: 2016Q1

REPORT INFORMATION
  Report Type: Report from Study
  Country: US (occurrence: US)
  Receive Date: 20151228
  Receipt Date: 20160204
  Transmission Date: 20160526
  Serious: Yes (Other)
  Sender: FDA-Public Use
  Company Number: US-BAYER-2015-452964

PATIENT
  Age: 73 Year
  Sex: Male

DRUGS (21)
  1. NEXAVAR [Suspect]
     Active Substance: SORAFENIB
     Indication: HEPATOCELLULAR CARCINOMA
     Dosage: 200 MG, BID
     Route: 048
     Dates: start: 201510
  2. MICROGENICS PROBIOTIC 8 [Concomitant]
  3. FLUTICASONE PROPIONATE. [Concomitant]
     Active Substance: FLUTICASONE PROPIONATE
  4. MILK THISTLE [Concomitant]
     Active Substance: MILK THISTLE
  5. FENOFIBRATE. [Concomitant]
     Active Substance: FENOFIBRATE
  6. HYDROCHLOROTHIAZIDE. [Concomitant]
     Active Substance: HYDROCHLOROTHIAZIDE
  7. LISINOPRIL AND HYDROCHLOROTHIAZIDE [Concomitant]
     Active Substance: HYDROCHLOROTHIAZIDE\LISINOPRIL
  8. CRANBERRY. [Concomitant]
     Active Substance: CRANBERRY
  9. PANTOPRAZOLE SODIUM. [Concomitant]
     Active Substance: PANTOPRAZOLE SODIUM
  10. ONDANSETRON HYDROCHLORIDE. [Concomitant]
     Active Substance: ONDANSETRON HYDROCHLORIDE
  11. SULFAMETHOXAZOLE/TRIMETHOPRIM [Concomitant]
     Active Substance: SULFAMETHOXAZOLE\TRIMETHOPRIM
  12. NEXAVAR [Suspect]
     Active Substance: SORAFENIB
     Indication: HEPATOCELLULAR CARCINOMA
     Dosage: 400 MG, BID
     Route: 048
  13. FUROSEMIDE. [Concomitant]
     Active Substance: FUROSEMIDE
  14. OXYCODONE [Concomitant]
     Active Substance: OXYCODONE
  15. SPIRIVA [Concomitant]
     Active Substance: TIOTROPIUM BROMIDE MONOHYDRATE
  16. APIXABAN [Concomitant]
     Active Substance: APIXABAN
  17. METFORMIN HCL [Concomitant]
     Active Substance: METFORMIN HYDROCHLORIDE
  18. TAMSULOSIN HYDROCHLORIDE. [Concomitant]
     Active Substance: TAMSULOSIN HYDROCHLORIDE
  19. NEXAVAR [Suspect]
     Active Substance: SORAFENIB
     Indication: HEPATOCELLULAR CARCINOMA
     Dosage: 400 MG, BID
     Route: 048
     Dates: start: 20151016
  20. ASPIRIN. [Concomitant]
     Active Substance: ASPIRIN
  21. TRAMADOL HCL CF [Concomitant]

REACTIONS (24)
  - Hepatocellular carcinoma [Not Recovered/Not Resolved]
  - Incontinence [Not Recovered/Not Resolved]
  - Decreased appetite [Not Recovered/Not Resolved]
  - Rash [Not Recovered/Not Resolved]
  - Pruritus [Not Recovered/Not Resolved]
  - Fatigue [None]
  - Rash macular [Not Recovered/Not Resolved]
  - Constipation [None]
  - Rash [None]
  - Diarrhoea [None]
  - Alopecia [Not Recovered/Not Resolved]
  - Fatigue [Not Recovered/Not Resolved]
  - Thrombosis [None]
  - Fatigue [Not Recovered/Not Resolved]
  - Fatigue [Not Recovered/Not Resolved]
  - Faeces pale [None]
  - Nocturia [Not Recovered/Not Resolved]
  - Arthralgia [None]
  - Anaemia [Not Recovered/Not Resolved]
  - Feeding disorder [Not Recovered/Not Resolved]
  - Hepatic lesion [None]
  - Back pain [None]
  - Arthralgia [None]
  - Rash pruritic [Not Recovered/Not Resolved]

NARRATIVE: CASE EVENT DATE: 20151016
